FAERS Safety Report 4265048-9 (Version None)
Quarter: 2004Q1

REPORT INFORMATION
  Report Type: 
  Country: None (occurrence: None)
  Receive Date: 20040106
  Receipt Date: 20040106
  Transmission Date: 20041129
  Serious: Yes (Hospitalization)
  Sender: FDA-Public Use
  Company Number: None

PATIENT
  Age: 55 Year
  Sex: Male
  Weight: 67 kg

DRUGS (2)
  1. OMNIPAQUE 75 ML [Suspect]
     Indication: ARTERIOGRAM
  2. MUCOMIST [Concomitant]

REACTIONS (1)
  - RENAL TUBULAR NECROSIS [None]
